FAERS Safety Report 22214218 (Version 1)
Quarter: 2023Q2

REPORT INFORMATION
  Report Type: Spontaneous
  Country: CZ (occurrence: CZ)
  Receive Date: 20230414
  Receipt Date: 20230414
  Transmission Date: 20230721
  Serious: Yes (Other)
  Sender: FDA-Public Use
  Company Number: CZ-BAUSCH-BL-2023-005782

PATIENT
  Age: 65 Year
  Sex: Male
  Weight: 85 kg

DRUGS (4)
  1. ACYCLOVIR [Suspect]
     Active Substance: ACYCLOVIR
     Indication: Herpes zoster
     Dosage: ON 15/JUN/UNSPECIFIED YEAR, AT 14:00 TILL 17/JUN/UNSPECIFIED YEAR
     Route: 042
  2. ACYCLOVIR [Suspect]
     Active Substance: ACYCLOVIR
     Dosage: 17/JUN/UNSPECIFIED YEAR TO 19/JUN/17UNSPECIFIED YEAR
     Route: 042
  3. ACYCLOVIR [Suspect]
     Active Substance: ACYCLOVIR
     Dosage: FROM 21/JUN/UNSPECIFIED YEAR
     Route: 042
  4. ACYCLOVIR [Suspect]
     Active Substance: ACYCLOVIR
     Indication: Herpes zoster
     Dosage: FROM 19/JUN/UNSPECIFIED YEAR TO 21/JUN/UNSPECIFIED YEAR
     Route: 048

REACTIONS (2)
  - Nephropathy toxic [Unknown]
  - Neurotoxicity [Not Recovered/Not Resolved]
